FAERS Safety Report 6718012-1 (Version None)
Quarter: 2010Q2

REPORT INFORMATION
  Report Type: 
  Country: None (occurrence: None)
  Receive Date: 20100510
  Receipt Date: 20100427
  Transmission Date: 20101027
  Serious: Yes (Hospitalization)
  Sender: FDA-Public Use
  Company Number: PHHY2010DE27609

PATIENT
  Age: 77 Year
  Sex: Female

DRUGS (2)
  1. EXELON [Suspect]
     Indication: DEMENTIA ALZHEIMER'S TYPE
     Dosage: 4.6 MG/DAY
     Route: 062
     Dates: start: 20100129
  2. EXELON [Suspect]
     Dosage: 9.5 MG /DAY
     Route: 062
     Dates: end: 20100304

REACTIONS (2)
  - GENERAL PHYSICAL HEALTH DETERIORATION [None]
  - PSYCHIATRIC DECOMPENSATION [None]
